FAERS Safety Report 5429566-X (Version None)
Quarter: 2007Q3

REPORT INFORMATION
  Report Type: 
  Country: None (occurrence: None)
  Receive Date: 20070829
  Receipt Date: 20070824
  Transmission Date: 20080115
  Serious: Yes (Other)
  Sender: FDA-Public Use
  Company Number: US-BRISTOL-MYERS SQUIBB COMPANY-13889555

PATIENT
  Sex: Male

DRUGS (4)
  1. SPRYCEL [Suspect]
     Indication: ACUTE LYMPHOCYTIC LEUKAEMIA
  2. METHOTREXATE [Suspect]
  3. HYDROCHLOROTHIAZIDE [Suspect]
  4. CYTARABINE [Suspect]

REACTIONS (1)
  - LEUKOENCEPHALOMYELITIS [None]
